FAERS Safety Report 18067432 (Version 1)
Quarter: 2020Q3

REPORT INFORMATION
  Report Type: Report from Study
  Country: HN (occurrence: HN)
  Receive Date: 20200724
  Receipt Date: 20200724
  Transmission Date: 20201103
  Serious: Yes (Death, Other)
  Sender: FDA-Public Use
  Company Number: NVSC2020HN208288

PATIENT
  Age: 71 Year
  Sex: Female

DRUGS (1)
  1. VYMADA [Suspect]
     Active Substance: SACUBITRIL\VALSARTAN
     Indication: PRODUCT USED FOR UNKNOWN INDICATION
     Dosage: 100 MG
     Route: 065
     Dates: end: 202001

REACTIONS (4)
  - Cardiac disorder [Unknown]
  - Death [Fatal]
  - Blood pressure abnormal [Unknown]
  - Renal failure [Unknown]
